FAERS Safety Report 8314175-5 (Version None)
Quarter: 2012Q2

REPORT INFORMATION
  Report Type: 
  Country: None (occurrence: None)
  Receive Date: 20120426
  Receipt Date: 20120417
  Transmission Date: 20120825
  Serious: Yes (Hospitalization)
  Sender: FDA-Public Use
  Company Number: JP-VERTEX PHARMACEUTICALS INC.-AE-2012-004842

PATIENT
  Age: 65 Year
  Sex: Male

DRUGS (8)
  1. REBETOL [Concomitant]
     Route: 048
     Dates: start: 20120410, end: 20120413
  2. TELAVIC (TELAPREVIR) [Suspect]
     Route: 048
     Dates: start: 20120203, end: 20120330
  3. TELAVIC (TELAPREVIR) [Suspect]
     Indication: HEPATITIS C
     Route: 048
     Dates: start: 20120124, end: 20120201
  4. PEG-INTRON [Concomitant]
     Route: 058
     Dates: start: 20120410, end: 20120413
  5. TELAVIC (TELAPREVIR) [Suspect]
     Route: 048
     Dates: start: 20120202, end: 20120202
  6. REBETOL [Concomitant]
     Indication: HEPATITIS C
     Route: 048
     Dates: start: 20120124, end: 20120330
  7. PEG-INTRON [Concomitant]
     Indication: HEPATITIS C
     Route: 058
     Dates: start: 20120124, end: 20120330
  8. FAMOTIDINE [Concomitant]
     Route: 048
     Dates: start: 20120202

REACTIONS (1)
  - STEVENS-JOHNSON SYNDROME [None]
